FAERS Safety Report 25954456 (Version 1)
Quarter: 2025Q4

REPORT INFORMATION
  Report Type: Spontaneous
  Country: US (occurrence: US)
  Receive Date: 20251024
  Receipt Date: 20251024
  Transmission Date: 20260118
  Serious: No
  Sender: ELI LILLY AND COMPANY
  Company Number: US-ELI_LILLY_AND_COMPANY-US202510015970

PATIENT
  Age: 60 Year

DRUGS (4)
  1. EBGLYSS [Suspect]
     Active Substance: LEBRIKIZUMAB-LBKZ
     Indication: Eczema
     Dosage: 250 MG, UNKNOWN
     Route: 058
     Dates: start: 20250911
  2. EBGLYSS [Suspect]
     Active Substance: LEBRIKIZUMAB-LBKZ
     Dosage: 250 MG, UNKNOWN
     Route: 058
     Dates: start: 20250911
  3. EBGLYSS [Suspect]
     Active Substance: LEBRIKIZUMAB-LBKZ
     Dosage: 250 MG, UNKNOWN
     Route: 058
     Dates: start: 20250911
  4. EBGLYSS [Suspect]
     Active Substance: LEBRIKIZUMAB-LBKZ
     Dosage: 250 MG, UNKNOWN
     Route: 058
     Dates: start: 20250911

REACTIONS (2)
  - Injection site indentation [Unknown]
  - Overdose [Unknown]

NARRATIVE: CASE EVENT DATE: 20250911
